FAERS Safety Report 10578074 (Version 1)
Quarter: 2014Q4

REPORT INFORMATION
  Report Type: Spontaneous
  Country: CA (occurrence: CA)
  Receive Date: 20141112
  Receipt Date: 20141112
  Transmission Date: 20150529
  Serious: Yes (Disabling, Other)
  Sender: FDA-Public Use
  Company Number: CA-ROCHE-1487184

PATIENT
  Age: 47 Year
  Sex: Male

DRUGS (4)
  1. XOLAIR [Suspect]
     Active Substance: OMALIZUMAB
     Route: 058
     Dates: start: 20061204
  2. XOLAIR [Suspect]
     Active Substance: OMALIZUMAB
     Route: 058
     Dates: start: 20140502, end: 20140502
  3. XOLAIR [Suspect]
     Active Substance: OMALIZUMAB
     Indication: ASTHMA
     Route: 058
     Dates: start: 20060502
  4. VENTOLIN [Concomitant]
     Active Substance: ALBUTEROL SULFATE

REACTIONS (16)
  - Erythema [Unknown]
  - Sputum discoloured [Unknown]
  - Rhinorrhoea [Unknown]
  - Herpes ophthalmic [Unknown]
  - Blood pressure systolic increased [Unknown]
  - Nasal congestion [Unknown]
  - Sinusitis [Recovering/Resolving]
  - Cough [Unknown]
  - Optic ischaemic neuropathy [Unknown]
  - Headache [Unknown]
  - Gastroenteritis viral [Recovered/Resolved]
  - Pruritus [Unknown]
  - Eczema [Unknown]
  - Malaise [Unknown]
  - Insomnia [Unknown]
  - Wound [Unknown]

NARRATIVE: CASE EVENT DATE: 201111
